FAERS Safety Report 5133873-8 (Version None)
Quarter: 2006Q4

REPORT INFORMATION
  Report Type: 
  Country: None (occurrence: None)
  Receive Date: 20061018
  Receipt Date: 20061005
  Transmission Date: 20070319
  Serious: Yes (Hospitalization)
  Sender: FDA-Public Use
  Company Number: 2006US002072

PATIENT
  Age: 59 Year
  Sex: Male

DRUGS (3)
  1. PROGRAF [Suspect]
     Indication: PROPHYLAXIS AGAINST TRANSPLANT REJECTION
     Dosage: 4 MG, BID, ORAL
     Route: 048
     Dates: start: 20060831
  2. MYCOPHENOLATE MOFETIL [Suspect]
     Indication: PROPHYLAXIS AGAINST TRANSPLANT REJECTION
     Dosage: 1000 MG, BID, ORAL
     Route: 048
     Dates: start: 20060822
  3. PREDNISONE TAB [Suspect]
     Indication: PROPHYLAXIS AGAINST TRANSPLANT REJECTION
     Dosage: 5 MG, BID, ORAL
     Route: 048
     Dates: start: 20060702

REACTIONS (2)
  - BLOOD ALKALINE PHOSPHATASE INCREASED [None]
  - FAILURE TO THRIVE [None]
